FAERS Safety Report 15618328 (Version 1)
Quarter: 2018Q4

REPORT INFORMATION
  Report Type: Spontaneous
  Country: US (occurrence: US)
  Receive Date: 20181114
  Receipt Date: 20181114
  Transmission Date: 20190205
  Serious: No
  Sender: FDA-Public Use
  Company Number: US-MYLANLABS-2018M1081301

PATIENT
  Sex: Male

DRUGS (1)
  1. ISOTRETINOIN. [Suspect]
     Active Substance: ISOTRETINOIN
     Indication: ROSACEA
     Dosage: 10 MG,

REACTIONS (3)
  - Inappropriate schedule of product administration [Unknown]
  - Lip dry [Not Recovered/Not Resolved]
  - Flushing [Not Recovered/Not Resolved]
